FAERS Safety Report 16041525 (Version 1)
Quarter: 2019Q1

REPORT INFORMATION
  Report Type: Spontaneous
  Country: US (occurrence: US)
  Receive Date: 20190207
  Receipt Date: 20190207
  Transmission Date: 20190418
  Serious: No
  Sender: FDA-Public Use
  Company Number: None

PATIENT
  Sex: Male

DRUGS (1)
  1. ZYTIGA [Suspect]
     Active Substance: ABIRATERONE ACETATE
     Indication: PROSTATE CANCER
     Route: 048
     Dates: start: 20181207

REACTIONS (9)
  - Cough [None]
  - Feeling abnormal [None]
  - Hot flush [None]
  - Amnesia [None]
  - Dry skin [None]
  - Arthralgia [None]
  - Nausea [None]
  - Sleep disorder [None]
  - Skin discolouration [None]
